FAERS Safety Report 4318642-0 (Version None)
Quarter: 2004Q1

REPORT INFORMATION
  Report Type: 
  Country: None (occurrence: None)
  Receive Date: 20040315
  Receipt Date: 20040315
  Transmission Date: 20041129
  Serious: Yes (Hospitalization)
  Sender: FDA-Public Use
  Company Number: None

PATIENT
  Age: 12 Year
  Sex: Male
  Weight: 50 kg

DRUGS (3)
  1. DEPAKOTE [Suspect]
     Indication: AFFECTIVE DISORDER
     Dosage: 1500 MG PO AT HS
     Route: 048
  2. TENEX [Concomitant]
  3. SEROQUEL [Concomitant]

REACTIONS (3)
  - ABDOMINAL PAIN LOWER [None]
  - NAUSEA [None]
  - VOMITING [None]
